FAERS Safety Report 18669198 (Version 1)
Quarter: 2020Q4

REPORT INFORMATION
  Report Type: Other
  Country: GB (occurrence: GB)
  Receive Date: 20201228
  Receipt Date: 20201228
  Transmission Date: 20210114
  Serious: Yes (Disabling, Other)
  Sender: FDA-Public Use
  Company Number: GB-STRIDES ARCOLAB LIMITED-2020SP016230

PATIENT
  Age: 23 Year
  Sex: Female
  Weight: 53.97 kg

DRUGS (9)
  1. SALBUTAMOL [Concomitant]
     Active Substance: ALBUTEROL
     Indication: PRODUCT USED FOR UNKNOWN INDICATION
     Dosage: UNK
     Route: 065
  2. PREDNISOLONE. [Suspect]
     Active Substance: PREDNISOLONE
     Indication: ECZEMA
     Dosage: 6 DOSAGE FORM  (PER DAY) 42 TABLETS
     Route: 048
     Dates: start: 20170526
  3. PREDNISOLONE. [Suspect]
     Active Substance: PREDNISOLONE
     Dosage: UNK, DOSE INCREASED
     Route: 065
     Dates: start: 2017
  4. PREDNISOLONE. [Suspect]
     Active Substance: PREDNISOLONE
     Dosage: 200 MILLIGRAM
     Route: 048
     Dates: start: 20170703, end: 20170708
  5. MOMETASONE [Suspect]
     Active Substance: MOMETASONE
     Indication: ECZEMA
     Dosage: (2 X 100 GRAM TUBES)
     Route: 061
     Dates: start: 20170710, end: 20180419
  6. CLOBETASONE [Suspect]
     Active Substance: CLOBETASONE
     Indication: ECZEMA
     Dosage: UNK (100 GRAMS)
     Route: 061
     Dates: start: 20170421
  7. CLOBETASONE [Suspect]
     Active Substance: CLOBETASONE
     Dosage: UNK, DOSE INCREASED
     Route: 065
     Dates: start: 2017
  8. SERETIDE [Concomitant]
     Active Substance: FLUTICASONE PROPIONATE\SALMETEROL XINAFOATE
     Indication: PRODUCT USED FOR UNKNOWN INDICATION
     Dosage: UNK
     Route: 065
  9. EUMOVATE [Suspect]
     Active Substance: CLOBETASONE BUTYRATE
     Indication: ECZEMA
     Dosage: UNK (100 GRAMS)
     Route: 061
     Dates: start: 20180215, end: 20180419

REACTIONS (19)
  - Skin weeping [Unknown]
  - Alopecia [Recovered/Resolved]
  - Skin hypertrophy [Unknown]
  - Skin wrinkling [Recovered/Resolved]
  - Peripheral swelling [Recovered/Resolved]
  - Hyperaesthesia [Recovered/Resolved]
  - Skin exfoliation [Recovered/Resolved]
  - Dermatitis [Unknown]
  - Skin texture abnormal [Unknown]
  - Fluid retention [Unknown]
  - Chills [Recovered/Resolved]
  - Dermatitis exfoliative generalised [Recovered/Resolved]
  - Amenorrhoea [Recovered/Resolved]
  - Steroid withdrawal syndrome [Recovered/Resolved]
  - Skin fissures [Unknown]
  - Pruritus [Recovered/Resolved]
  - Lymphadenopathy [Recovered/Resolved]
  - Dry skin [Unknown]
  - Skin warm [Unknown]

NARRATIVE: CASE EVENT DATE: 20180401
